FAERS Safety Report 5137338-9 (Version None)
Quarter: 2006Q4

REPORT INFORMATION
  Report Type: 
  Country: None (occurrence: None)
  Receive Date: 20061030
  Receipt Date: 20051013
  Transmission Date: 20070319
  Serious: No
  Sender: FDA-Public Use
  Company Number: US-GLAXOSMITHKLINE-A0578166A

PATIENT
  Age: 55 Year
  Sex: Female

DRUGS (5)
  1. ADVAIR HFA [Suspect]
     Indication: ASTHMA
     Dosage: 1PUFF PER DAY
     Route: 055
     Dates: start: 20051010
  2. SINGULAIR [Concomitant]
  3. ACTOS [Concomitant]
  4. LOTREL [Concomitant]
  5. LASIX [Concomitant]

REACTIONS (3)
  - ACCIDENTAL OVERDOSE [None]
  - DYSPNOEA [None]
  - PHARMACEUTICAL PRODUCT COMPLAINT [None]
